FAERS Safety Report 12568355 (Version 2)
Quarter: 2016Q3

REPORT INFORMATION
  Report Type: Spontaneous
  Country: US (occurrence: US)
  Receive Date: 20160718
  Receipt Date: 20160819
  Transmission Date: 20161109
  Serious: No
  Sender: FDA-Public Use
  Company Number: US-ASTRAZENECA-2016SE71409

PATIENT
  Sex: Female
  Weight: 81.6 kg

DRUGS (5)
  1. CHANTIX [Concomitant]
     Active Substance: VARENICLINE TARTRATE
     Indication: EX-TOBACCO USER
     Route: 048
  2. SYMBICORT [Suspect]
     Active Substance: BUDESONIDE\FORMOTEROL FUMARATE DIHYDRATE
     Indication: EMPHYSEMA
     Dosage: 80 4.5, 2 PUFFS TWICE A DAY
     Route: 055
     Dates: start: 20160610
  3. PROAIR INHALER [Concomitant]
     Route: 055
  4. SYMBICORT [Suspect]
     Active Substance: BUDESONIDE\FORMOTEROL FUMARATE DIHYDRATE
     Indication: EMPHYSEMA
     Dosage: 80 4.5, 2 PUFFS TWICE A DAY
     Route: 055
     Dates: start: 20160101
  5. ALBUTEROL. [Concomitant]
     Active Substance: ALBUTEROL
     Indication: MALAISE
     Route: 055

REACTIONS (6)
  - Malaise [Unknown]
  - Product use issue [Unknown]
  - Drug dose omission [Unknown]
  - Dry mouth [Unknown]
  - Underdose [Unknown]
  - Device issue [Unknown]
